FAERS Safety Report 25335337 (Version 2)
Quarter: 2025Q3

REPORT INFORMATION
  Report Type: Report from Study
  Country: CA (occurrence: CA)
  Receive Date: 20250520
  Receipt Date: 20250927
  Transmission Date: 20251020
  Serious: Yes (Hospitalization, Other)
  Sender: ABBVIE
  Company Number: CA-ABBVIE-6187196

PATIENT
  Age: 34 Year
  Sex: Female

DRUGS (1)
  1. SKYRIZI [Suspect]
     Active Substance: RISANKIZUMAB-RZAA
     Indication: Crohn^s disease
     Dosage: SKYRIZI OBI 360MG/2.4ML?STARTING ON WEEK 12: INJECT THE CONTENTS OF 1 CARTRIDGE (360MG) SUBCUTANE...
     Route: 058

REACTIONS (4)
  - Gastrointestinal inflammation [Unknown]
  - Abscess [Unknown]
  - Hospitalisation [Recovered/Resolved]
  - Hospitalisation [Recovered/Resolved]

NARRATIVE: CASE EVENT DATE: 20241203
